FAERS Safety Report 8166366-4 (Version None)
Quarter: 2012Q1

REPORT INFORMATION
  Report Type: 
  Country: None (occurrence: None)
  Receive Date: 20120227
  Receipt Date: 20110621
  Transmission Date: 20120608
  Serious: Yes (Other)
  Sender: FDA-Public Use
  Company Number: US-MYLANLABS-2011S1012941

PATIENT
  Sex: Male

DRUGS (3)
  1. ACCUTANE [Suspect]
     Indication: ACNE
     Route: 048
  2. AMNESTEEM [Suspect]
     Indication: ACNE
     Route: 048
     Dates: start: 20090601, end: 20090701
  3. SOTRET [Suspect]
     Indication: ACNE
     Route: 048
     Dates: start: 20090201, end: 20090601

REACTIONS (3)
  - CROHN'S DISEASE [None]
  - COLITIS ULCERATIVE [None]
  - INFLAMMATORY BOWEL DISEASE [None]
